FAERS Safety Report 4435291-4 (Version None)
Quarter: 2004Q3

REPORT INFORMATION
  Report Type: 
  Country: None (occurrence: None)
  Receive Date: 20040826
  Receipt Date: 20040813
  Transmission Date: 20050211
  Serious: Yes (Life-Threatening)
  Sender: FDA-Public Use
  Company Number: 2004-UK-00795UK

PATIENT
  Age: 71 Year
  Sex: Male

DRUGS (2)
  1. MICARDIS [Suspect]
     Indication: CEREBROVASCULAR ACCIDENT PROPHYLAXIS
     Dosage: 80 MG
     Route: 048
     Dates: start: 20040804, end: 20040813
  2. CLOPIDOGREL (AGGRENOX REFERENCE) (TA) [Suspect]
     Indication: CEREBROVASCULAR ACCIDENT PROPHYLAXIS
     Dosage: 75 MG
     Route: 048
     Dates: start: 20040804

REACTIONS (2)
  - CONDITION AGGRAVATED [None]
  - HYPERKALAEMIA [None]
